FAERS Safety Report 9147873 (Version 1)
Quarter: 2013Q1

REPORT INFORMATION
  Report Type: Spontaneous
  Country: MX (occurrence: MX)
  Receive Date: 20130307
  Receipt Date: 20130307
  Transmission Date: 20140127
  Serious: Yes (Hospitalization)
  Sender: FDA-Public Use
  Company Number: MX-AMGEN-MEXSP2013015222

PATIENT
  Sex: Male

DRUGS (1)
  1. VECTIBIX [Suspect]
     Indication: PRODUCT USED FOR UNKNOWN INDICATION
     Dosage: UNK
     Dates: end: 20130206

REACTIONS (1)
  - Gastrointestinal toxicity [Unknown]
